FAERS Safety Report 10101900 (Version 2)
Quarter: 2014Q2

REPORT INFORMATION
  Report Type: Spontaneous
  Country: US (occurrence: None)
  Receive Date: 20140422
  Receipt Date: 20140429
  Transmission Date: 20141212
  Serious: Yes (Other)
  Sender: FDA-Public Use
  Company Number: AUR-APL-2014-04755

PATIENT
  Age: 81 Year
  Sex: Female
  Weight: 61 kg

DRUGS (2)
  1. METFORMIN (METFORMIN) [Suspect]
     Indication: TYPE 2 DIABETES MELLITUS
     Dosage: (500 MG, 2 IN 1 D)
     Dates: start: 2012
  2. ARMOUR THYROID(THYROID) [Concomitant]

REACTIONS (2)
  - Respiratory tract infection [None]
  - Weight decreased [None]
